FAERS Safety Report 12107362 (Version 1)
Quarter: 2016Q1

REPORT INFORMATION
  Report Type: Spontaneous
  Country: CA (occurrence: CA)
  Receive Date: 20160223
  Receipt Date: 20160223
  Transmission Date: 20160526
  Serious: Yes (Other)
  Sender: FDA-Public Use
  Company Number: CA-TEVA-637130ACC

PATIENT
  Age: 63 Year
  Sex: Female
  Weight: 54 kg

DRUGS (2)
  1. TEVA-RABEPRAZOLE EC [Concomitant]
     Active Substance: RABEPRAZOLE
  2. TEVA-QUETIAPINE XR [Suspect]
     Active Substance: QUETIAPINE
     Indication: SCHIZOAFFECTIVE DISORDER
     Dosage: 800 MILLIGRAM DAILY;
     Route: 048

REACTIONS (4)
  - Drug ineffective [Recovered/Resolved]
  - Bipolar I disorder [Recovered/Resolved]
  - Paranoia [Recovered/Resolved]
  - Aggression [Recovered/Resolved]
